FAERS Safety Report 6037278-7 (Version None)
Quarter: 2009Q1

REPORT INFORMATION
  Report Type: 
  Country: None (occurrence: None)
  Receive Date: 20090114
  Receipt Date: 20090109
  Transmission Date: 20090719
  Serious: Yes (Hospitalization, Other)
  Sender: FDA-Public Use
  Company Number: B0550190A

PATIENT
  Age: 73 Year
  Sex: Female
  Weight: 56 kg

DRUGS (9)
  1. LAMICTAL [Suspect]
     Indication: BIPOLAR DISORDER
     Dosage: 25MG PER DAY
     Route: 065
     Dates: start: 20081104, end: 20081207
  2. LEPONEX [Suspect]
     Route: 065
     Dates: start: 20081104, end: 20081204
  3. BIPERIDEN HYDROCHLORIDE TAB [Concomitant]
  4. CELEBREX [Concomitant]
  5. ALLOPURINOL 100 [Concomitant]
  6. ACARBOSE [Concomitant]
  7. NORVASC [Concomitant]
  8. UNKNOWN DRUG [Concomitant]
  9. NSAIDS [Concomitant]

REACTIONS (9)
  - LUNG INFILTRATION [None]
  - LUNG NEOPLASM [None]
  - MUCOSAL EROSION [None]
  - PNEUMONIA [None]
  - PYREXIA [None]
  - RASH [None]
  - SKIN EXFOLIATION [None]
  - STEVENS-JOHNSON SYNDROME [None]
  - URTICARIA [None]
